FAERS Safety Report 19153908 (Version 4)
Quarter: 2021Q3

REPORT INFORMATION
  Report Type: Report from Study
  Country: US (occurrence: US)
  Receive Date: 20210419
  Receipt Date: 20210913
  Transmission Date: 20211014
  Serious: No
  Sender: FDA-Public Use
  Company Number: NVSC2021US087460

PATIENT
  Sex: Female

DRUGS (3)
  1. COSENTYX [Suspect]
     Active Substance: SECUKINUMAB
     Dosage: 150 MG, QW (DROP)
     Route: 058
  2. COSENTYX [Suspect]
     Active Substance: SECUKINUMAB
     Dosage: 150 MG, QMO
     Route: 058
  3. COSENTYX [Suspect]
     Active Substance: SECUKINUMAB
     Indication: PSORIATIC ARTHROPATHY
     Dosage: 150 MG, QW
     Route: 058

REACTIONS (10)
  - Musculoskeletal stiffness [Unknown]
  - Drug ineffective [Unknown]
  - Middle insomnia [Unknown]
  - Peripheral swelling [Unknown]
  - Arthralgia [Unknown]
  - Onychoclasis [Unknown]
  - Inflammation [Unknown]
  - Skin exfoliation [Unknown]
  - Pain in extremity [Unknown]
  - Rhinorrhoea [Recovered/Resolved]
